FAERS Safety Report 25940888 (Version 1)
Quarter: 2025Q4

REPORT INFORMATION
  Report Type: Spontaneous
  Country: US (occurrence: None)
  Receive Date: 20251018
  Receipt Date: 20251018
  Transmission Date: 20260118
  Serious: Yes (Hospitalization)
  Sender: FDA-CTU
  Company Number: None

PATIENT
  Age: 69 Year
  Sex: Male
  Weight: 82.7 kg

DRUGS (3)
  1. CISPLATIN [Suspect]
     Active Substance: CISPLATIN
     Dates: end: 20250917
  2. GEMCITABINE HYDROCHLORIDE [Suspect]
     Active Substance: GEMCITABINE HYDROCHLORIDE
     Dates: end: 20250924
  3. NEULASTA [Suspect]
     Active Substance: PEGFILGRASTIM
     Dates: end: 20250925

REACTIONS (12)
  - Tachycardia [None]
  - Leukocytosis [None]
  - Sepsis [None]
  - Hyponatraemia [None]
  - Hyperglycaemia [None]
  - Hypocalcaemia [None]
  - Hypoalbuminaemia [None]
  - Anaemia [None]
  - Platelet count decreased [None]
  - Hypokalaemia [None]
  - Hypomagnesaemia [None]
  - Diarrhoea [None]

NARRATIVE: CASE EVENT DATE: 20251002
